FAERS Safety Report 21751585 (Version 1)
Quarter: 2022Q4

REPORT INFORMATION
  Report Type: Spontaneous
  Country: US (occurrence: US)
  Receive Date: 20221220
  Receipt Date: 20221220
  Transmission Date: 20230112
  Serious: Yes (Other)
  Sender: FDA-Public Use
  Company Number: US-BRISTOL-MYERS SQUIBB COMPANY-2022-154243

PATIENT
  Age: 87 Year
  Sex: Female
  Weight: 54.43 kg

DRUGS (1)
  1. REVLIMID [Suspect]
     Active Substance: LENALIDOMIDE
     Indication: Plasma cell myeloma
     Dosage: 14D OF 21D CYCLE
     Route: 048
     Dates: start: 20220201

REACTIONS (5)
  - Fatigue [Unknown]
  - Osteonecrosis [Unknown]
  - Sinus disorder [Unknown]
  - Cellulitis [Unknown]
  - Off label use [Unknown]
